FAERS Safety Report 4405948-X (Version None)
Quarter: 2004Q3

REPORT INFORMATION
  Report Type: 
  Country: None (occurrence: None)
  Receive Date: 20040723
  Receipt Date: 20040216
  Transmission Date: 20050211
  Serious: No
  Sender: FDA-Public Use
  Company Number: US-GLAXOSMITHKLINE-A0498338A

PATIENT
  Age: 47 Year
  Sex: Female

DRUGS (4)
  1. AVANDIA [Suspect]
     Dosage: 2MG PER DAY
     Route: 048
     Dates: start: 20040129
  2. GLUCOPHAGE [Concomitant]
  3. ACTIVELLE [Concomitant]
  4. SYNTHROID [Concomitant]

REACTIONS (3)
  - DRUG INEFFECTIVE [None]
  - EYE SWELLING [None]
  - HEADACHE [None]
